FAERS Safety Report 8600106-7 (Version None)
Quarter: 2012Q3

REPORT INFORMATION
  Report Type: 
  Country: None (occurrence: None)
  Receive Date: 20120816
  Receipt Date: 20120806
  Transmission Date: 20120928
  Serious: Yes (Hospitalization)
  Sender: FDA-Public Use
  Company Number: DE-BAXTER-2012BAX013813

PATIENT
  Sex: Female
  Weight: 66 kg

DRUGS (3)
  1. KIOVIG [Suspect]
     Dosage: 10G/100ML
     Route: 042
  2. TRANCOLONG [Concomitant]
     Indication: PAIN
     Dosage: NOT REPORTED
  3. DOLO VISANO                        /00210001/ [Concomitant]
     Indication: PAIN
     Dosage: NOT REPORTED

REACTIONS (5)
  - PROCTITIS [None]
  - COLONIC POLYP [None]
  - ABDOMINAL PAIN [None]
  - DIARRHOEA HAEMORRHAGIC [None]
  - ANAL HAEMORRHAGE [None]
